FAERS Safety Report 5535629-0 (Version None)
Quarter: 2007Q4

REPORT INFORMATION
  Report Type: 
  Country: None (occurrence: None)
  Receive Date: 20071206
  Receipt Date: 20070115
  Transmission Date: 20080405
  Serious: Yes (Other)
  Sender: FDA-Public Use
  Company Number: US-AMGEN-STX202391

PATIENT
  Sex: Female

DRUGS (4)
  1. ENBREL [Suspect]
     Indication: RHEUMATOID ARTHRITIS
     Route: 058
     Dates: start: 19990101, end: 20061201
  2. ZOLOFT [Concomitant]
  3. VOLTAREN [Concomitant]
  4. XANAX [Concomitant]

REACTIONS (7)
  - CHRONIC MYELOID LEUKAEMIA [None]
  - FATIGUE [None]
  - HELICOBACTER PYLORI IDENTIFICATION TEST POSITIVE [None]
  - INFLUENZA [None]
  - PNEUMONIA [None]
  - RHEUMATOID ARTHRITIS [None]
  - WHITE BLOOD CELL COUNT INCREASED [None]
